FAERS Safety Report 20417563 (Version 1)
Quarter: 2022Q1

REPORT INFORMATION
  Report Type: Spontaneous
  Country: JP (occurrence: JP)
  Receive Date: 20220202
  Receipt Date: 20220202
  Transmission Date: 20220423
  Serious: Yes (Other)
  Sender: FDA-Public Use
  Company Number: JP-PFIZER INC-202200132789

PATIENT
  Age: 79 Year
  Sex: Female

DRUGS (1)
  1. AZULFIDINE EN-TABS [Suspect]
     Active Substance: SULFASALAZINE
     Dosage: UNK
     Route: 048
     Dates: start: 202103, end: 202104

REACTIONS (1)
  - Drug reaction with eosinophilia and systemic symptoms [Unknown]
